FAERS Safety Report 4269920-5 (Version None)
Quarter: 2004Q1

REPORT INFORMATION
  Report Type: 
  Country: None (occurrence: None)
  Receive Date: 20040112
  Receipt Date: 20031229
  Transmission Date: 20041129
  Serious: Yes (Hospitalization)
  Sender: FDA-Public Use
  Company Number: US-JNJFOC-20031205586

PATIENT
  Age: 58 Year
  Sex: Female
  Weight: 72.5755 kg

DRUGS (13)
  1. INFLIXIMAB (INFLIXIMAB, RECOMBINANT) LYOPHILIZED POWDER [Suspect]
     Indication: RHEUMATOID ARTHRITIS
     Dosage: 1 DOSE (S), IN 5 WEEK, INTRAVENOUS
     Route: 042
     Dates: start: 20000517
  2. METHOTREXATE [Concomitant]
  3. ZESTRIL [Concomitant]
  4. AMARYL [Concomitant]
  5. ULTRAM [Concomitant]
  6. RESTORIL [Concomitant]
  7. XANAX [Concomitant]
  8. NEXIUM [Concomitant]
  9. ZANAFLEX [Concomitant]
  10. NAPROXEN [Concomitant]
  11. QUINAM (QUININE SULFATE) [Concomitant]
  12. CALCIUM (CALCIUM) [Concomitant]
  13. MULTIVITAMIN [Concomitant]

REACTIONS (5)
  - HAEMATEMESIS [None]
  - HAEMATOCRIT DECREASED [None]
  - MALLORY-WEISS SYNDROME [None]
  - RETCHING [None]
  - UPPER RESPIRATORY TRACT INFECTION [None]
